FAERS Safety Report 6480834-2 (Version None)
Quarter: 2009Q4

REPORT INFORMATION
  Report Type: 
  Country: None (occurrence: None)
  Receive Date: 20091203
  Receipt Date: 20091121
  Transmission Date: 20100525
  Serious: Yes (Hospitalization, Disabling, Other)
  Sender: FDA-Public Use
  Company Number: 2009AP004709

PATIENT
  Age: 48 Year
  Sex: Female

DRUGS (11)
  1. HALOPERIDOL [Suspect]
     Indication: PARANOIA
     Dosage: 3 MG; TID; 5 MG
  2. CLONAZEPAM [Suspect]
     Indication: ANXIETY
     Dosage: 2 MG; BID; 1 MG; BID, PO
     Route: 048
  3. DEPAKENE [Suspect]
     Dosage: 1750 MG; QD
  4. RISPERDAL CONSTA [Suspect]
     Dosage: 50 MG; IM
     Route: 030
  5. QUETIAPINE FUMARATE [Suspect]
     Indication: ABNORMAL BEHAVIOUR
     Dosage: 25 MG; QD; 125 MG; TID
  6. QUETIAPINE FUMARATE [Suspect]
     Indication: AFFECTIVE DISORDER
     Dosage: 25 MG; QD; 125 MG; TID
  7. QUETIAPINE FUMARATE [Suspect]
     Indication: PARANOIA
     Dosage: 25 MG; QD; 125 MG; TID
  8. BENZTROPINE MESYLATE [Suspect]
     Dosage: 1 MG; BID
  9. ROBUTUSSIN DM   /USA/ [Suspect]
     Indication: COUGH
  10. ROBUTUSSIN DM   /USA/ [Suspect]
     Indication: UPPER RESPIRATORY TRACT INFECTION
  11. DIPHENHYDRAMINE HCL [Concomitant]

REACTIONS (20)
  - ACTIVITIES OF DAILY LIVING IMPAIRED [None]
  - AFFECT LABILITY [None]
  - AGGRESSION [None]
  - ANGER [None]
  - CATARACT [None]
  - COGNITIVE DISORDER [None]
  - DELUSION [None]
  - DEMENTIA [None]
  - DISORIENTATION [None]
  - DRUG INTERACTION [None]
  - FALL [None]
  - HALLUCINATION [None]
  - HIP FRACTURE [None]
  - INSOMNIA [None]
  - LETHARGY [None]
  - MEMORY IMPAIRMENT [None]
  - PARANOIA [None]
  - PNEUMONIA [None]
  - SCREAMING [None]
  - UPPER RESPIRATORY TRACT INFECTION [None]
